FAERS Safety Report 8583873 (Version 2)
Quarter: 2013Q4

REPORT INFORMATION
  Report Type: Spontaneous
  Country: US (occurrence: US)
  Receive Date: 20120529
  Receipt Date: 20131113
  Transmission Date: 20140711
  Serious: Yes (Other)
  Sender: FDA-Public Use
  Company Number: US-PFIZER INC-2012126140

PATIENT
  Age: 49 Year
  Sex: Female
  Weight: 49.89 kg

DRUGS (1)
  1. LYRICA [Suspect]
     Indication: FIBROMYALGIA
     Dosage: UNK
     Dates: end: 201204

REACTIONS (13)
  - Neuralgia [Unknown]
  - Weight decreased [Unknown]
  - Weight increased [Recovered/Resolved]
  - Fluid retention [Unknown]
  - Swelling [Unknown]
  - Feeling abnormal [Unknown]
  - Blood creatine phosphokinase increased [Unknown]
  - Incontinence [Unknown]
  - Hot flush [Unknown]
  - Hyperhidrosis [Unknown]
  - Amenorrhoea [Unknown]
  - Inflammation [Unknown]
  - Pain [Unknown]
